FAERS Safety Report 8984731 (Version 2)
Quarter: 2013Q4

REPORT INFORMATION
  Report Type: Spontaneous
  Country: US (occurrence: None)
  Receive Date: 20121214
  Receipt Date: 20131002
  Transmission Date: 20140711
  Serious: Yes (Hospitalization)
  Sender: FDA-Public Use
  Company Number: 2012P1066516

PATIENT
  Age: 55 Year
  Sex: Female
  Weight: 114.76 kg

DRUGS (7)
  1. INFUMORPH [Suspect]
     Indication: PAIN
  2. VALIUM [Concomitant]
  3. METHADONE [Concomitant]
  4. PERCOCET [Concomitant]
  5. PENTANYL PATCHES [Concomitant]
  6. DILANTIN [Concomitant]
  7. NEURONTIN [Concomitant]
     Indication: PAIN

REACTIONS (8)
  - Headache [None]
  - Implant site extravasation [None]
  - Meningitis [None]
  - Injury [None]
  - Medical device change [None]
  - Constipation [None]
  - Type 2 diabetes mellitus [None]
  - Implant site infection [None]
